FAERS Safety Report 4555750-3 (Version None)
Quarter: 2005Q1

REPORT INFORMATION
  Report Type: 
  Country: None (occurrence: None)
  Receive Date: 20050119
  Receipt Date: 20050111
  Transmission Date: 20050727
  Serious: Yes (Death)
  Sender: FDA-Public Use
  Company Number: 200510134FR

PATIENT
  Age: 55 Year
  Sex: Female

DRUGS (6)
  1. LASILIX [Suspect]
     Route: 042
     Dates: start: 20041214, end: 20041215
  2. MEPRONIZINE [Suspect]
     Dosage: DOSE UNIT: UNITS
     Route: 048
     Dates: start: 20041213, end: 20041219
  3. AREDIA [Suspect]
     Route: 042
     Dates: start: 20041216, end: 20041216
  4. SOPHIDONE LP [Suspect]
     Route: 048
     Dates: start: 20041216, end: 20041223
  5. EQUANIL [Suspect]
     Route: 048
     Dates: start: 20041214, end: 20041219
  6. SOLU-MEDROL [Suspect]
     Route: 042
     Dates: start: 20041213, end: 20041217

REACTIONS (4)
  - DRUG TOXICITY [None]
  - PARANEOPLASTIC SYNDROME [None]
  - RENAL FAILURE ACUTE [None]
  - TUMOUR LYSIS SYNDROME [None]
